FAERS Safety Report 6644745-1 (Version None)
Quarter: 2010Q1

REPORT INFORMATION
  Report Type: 
  Country: None (occurrence: None)
  Receive Date: 20100318
  Receipt Date: 20100318
  Transmission Date: 20100710
  Serious: No
  Sender: FDA-Public Use
  Company Number: None

PATIENT
  Age: 60 Year
  Sex: Male
  Weight: 78 kg

DRUGS (1)
  1. LORAZEPAM [Suspect]
     Indication: AGITATION
     Dosage: 0.5 MG PRN IM
     Route: 030
     Dates: start: 20091228

REACTIONS (4)
  - CARDIO-RESPIRATORY ARREST [None]
  - RESPIRATORY DEPRESSION [None]
  - SEDATION [None]
  - UNRESPONSIVE TO STIMULI [None]
